FAERS Safety Report 6940174-1 (Version None)
Quarter: 2010Q3

REPORT INFORMATION
  Report Type: 
  Country: None (occurrence: None)
  Receive Date: 20100820
  Receipt Date: 20100804
  Transmission Date: 20110219
  Serious: Yes (Hospitalization)
  Sender: FDA-Public Use
  Company Number: 2010080029

PATIENT
  Age: 20 Year
  Sex: Male

DRUGS (4)
  1. TALOXA (FELBAMATE) [Suspect]
     Indication: EPILEPSY
     Dosage: 200 MG (200 MG, 1 IN 1 D), ORAL
     Route: 048
     Dates: start: 20100731, end: 20100801
  2. VALPROIC ACID [Concomitant]
  3. LAMOTRIGINE [Concomitant]
  4. ZONISAMIDE [Concomitant]

REACTIONS (2)
  - HALLUCINATION, VISUAL [None]
  - PHOBIA [None]
